FAERS Safety Report 24711109 (Version 1)
Quarter: 2024Q4

REPORT INFORMATION
  Report Type: Spontaneous
  Country: JP (occurrence: JP)
  Receive Date: 20241209
  Receipt Date: 20241209
  Transmission Date: 20250114
  Serious: Yes (Death)
  Sender: EMD SERONO INC
  Company Number: JP-Merck Healthcare KGaA-2024064499

PATIENT
  Age: 71 Year
  Sex: Male

DRUGS (1)
  1. BAVENCIO [Suspect]
     Active Substance: AVELUMAB
     Indication: Bladder transitional cell carcinoma

REACTIONS (2)
  - Death [Fatal]
  - Disease progression [Unknown]
